FAERS Safety Report 14657339 (Version 1)
Quarter: 2018Q1

REPORT INFORMATION
  Report Type: Report from Study
  Country: US (occurrence: US)
  Receive Date: 20180319
  Receipt Date: 20180319
  Transmission Date: 20180509
  Serious: Yes (Hospitalization)
  Sender: FDA-Public Use
  Company Number: US-GILEAD-2018-0326527

PATIENT
  Age: 50 Year
  Sex: Male

DRUGS (2)
  1. CARVEDILOL. [Concomitant]
     Active Substance: CARVEDILOL
  2. IDELALISIB [Suspect]
     Active Substance: IDELALISIB
     Indication: LYMPHOMA
     Dosage: 1 DF, BID
     Route: 048
     Dates: start: 20170623

REACTIONS (2)
  - Surgery [Not Recovered/Not Resolved]
  - Haemorrhage [Not Recovered/Not Resolved]
